FAERS Safety Report 13485158 (Version 4)
Quarter: 2024Q3

REPORT INFORMATION
  Report Type: Spontaneous
  Country: JP (occurrence: JP)
  Receive Date: 20170426
  Receipt Date: 20240919
  Transmission Date: 20241017
  Serious: Yes (Other)
  Sender: AEGERION
  Company Number: None

PATIENT

DRUGS (5)
  1. JUXTAPID [Suspect]
     Active Substance: LOMITAPIDE MESYLATE
     Indication: Type IIa hyperlipidaemia
     Dosage: 20 MG, QD
     Route: 048
     Dates: start: 20170130
  2. ZETIA [Concomitant]
     Active Substance: EZETIMIBE
     Indication: Product used for unknown indication
     Dosage: 10 MILLIGRAM, QD
     Route: 048
     Dates: start: 20071110
  3. ASPIRIN [Concomitant]
     Active Substance: ASPIRIN
     Indication: Prophylaxis
     Dosage: 100 MILLIGRAM, QD
     Route: 048
     Dates: start: 20170424
  4. CRESTOR [Concomitant]
     Active Substance: ROSUVASTATIN CALCIUM
     Indication: Product used for unknown indication
     Dosage: 7.5 MILLIGRAM, QD
     Route: 048
     Dates: start: 20080209
  5. FERROUS SULFATE [Concomitant]
     Active Substance: FERROUS SULFATE
     Indication: Prophylaxis
     Dosage: 405 MILLIGRAM, QD
     Route: 048
     Dates: start: 20170413, end: 20170427

REACTIONS (2)
  - Amaurosis fugax [Recovered/Resolved]
  - Retinal artery occlusion [Unknown]

NARRATIVE: CASE EVENT DATE: 20170409
